FAERS Safety Report 5007179-1 (Version None)
Quarter: 2006Q1

REPORT INFORMATION
  Report Type: 
  Country: None (occurrence: None)
  Receive Date: 20060327
  Receipt Date: 20060120
  Transmission Date: 20060701
  Serious: Yes (Hospitalization)
  Sender: FDA-Public Use
  Company Number: 221460

PATIENT
  Age: 56 Year
  Sex: Female

DRUGS (6)
  1. AVASTIN [Suspect]
     Indication: METASTATIC NEOPLASM
     Dosage: 5 MG/KG, Q2W,
     Dates: start: 20050816
  2. PREDNISONE TAB [Concomitant]
  3. SULAMYD (SULFACETAMIDE SODIUM) [Concomitant]
  4. BENADRYL [Concomitant]
  5. ZANTAC [Concomitant]
  6. ALLERGY (CHLORPHENIRAMINE MALEATE, PHENYLPROPANOLAMINE HYDROCHLORIDE) [Concomitant]

REACTIONS (1)
  - INFUSION RELATED REACTION [None]
